FAERS Safety Report 7633832-7 (Version None)
Quarter: 2011Q3

REPORT INFORMATION
  Report Type: 
  Country: None (occurrence: None)
  Receive Date: 20110714
  Receipt Date: 20100616
  Transmission Date: 20111222
  Serious: Yes (Death, Life-Threatening, Hospitalization, Disabling)
  Sender: FDA-Public Use
  Company Number: 2010SP034959

PATIENT
  Sex: Male

DRUGS (2)
  1. HEPARIN [Concomitant]
  2. INTEGRILIN [Suspect]
     Indication: PRODUCT USED FOR UNKNOWN INDICATION
     Dosage: INBO
     Route: 040
     Dates: start: 20100611

REACTIONS (2)
  - HAEMORRHAGE [None]
  - OVERDOSE [None]
